FAERS Safety Report 8963678 (Version 1)
Quarter: 2012Q4

REPORT INFORMATION
  Report Type: 
  Country: FR (occurrence: FR)
  Receive Date: 20121214
  Receipt Date: 20121214
  Transmission Date: 20130627
  Serious: Yes (Other)
  Sender: FDA-Public Use
  Company Number: FR-009507513-1212FRA002210

PATIENT
  Age: 18 Year
  Sex: Female

DRUGS (2)
  1. NUVARING [Suspect]
     Indication: PRODUCT USED FOR UNKNOWN INDICATION
     Dosage: UNK
     Route: 067
     Dates: start: 20121203
  2. ACTIFED [Suspect]
     Indication: SINUSITIS

REACTIONS (2)
  - Accommodation disorder [Recovered/Resolved]
  - Blood glucose increased [Not Recovered/Not Resolved]
